FAERS Safety Report 15941627 (Version 1)
Quarter: 2019Q1

REPORT INFORMATION
  Report Type: Spontaneous
  Country: US (occurrence: US)
  Receive Date: 20190208
  Receipt Date: 20190208
  Transmission Date: 20190417
  Serious: Yes (Other)
  Sender: FDA-Public Use
  Company Number: None

PATIENT
  Age: 67 Year
  Sex: Female
  Weight: 43.65 kg

DRUGS (1)
  1. ALENDRONATE SODIUM TABLETS, USP [Suspect]
     Active Substance: ALENDRONATE SODIUM
     Indication: OSTEOPOROSIS
     Dosage: ?          QUANTITY:1 TABLET(S);OTHER FREQUENCY:ONCE A WEEK;?
     Route: 048
     Dates: start: 20190204, end: 20190205

REACTIONS (3)
  - Gastrooesophageal reflux disease [None]
  - Muscle spasms [None]
  - Abdominal pain upper [None]

NARRATIVE: CASE EVENT DATE: 20190207
